FAERS Safety Report 7972534-4 (Version None)
Quarter: 2011Q4

REPORT INFORMATION
  Report Type: 
  Country: None (occurrence: None)
  Receive Date: 20111209
  Receipt Date: 20111129
  Transmission Date: 20120403
  Serious: Yes (Other)
  Sender: FDA-Public Use
  Company Number: PNIS20110028

PATIENT
  Age: 50 Year
  Sex: Male

DRUGS (3)
  1. CYCLOSPORINE [Concomitant]
  2. PREDNISOLONE [Suspect]
     Indication: IMMUNOSUPPRESSION
     Dosage: 10 MG/DAY, ORAL
     Route: 048
  3. LERCANIDIPINE [Concomitant]

REACTIONS (3)
  - RETINAL PIGMENT EPITHELIOPATHY [None]
  - CHORIORETINOPATHY [None]
  - RETINAL DETACHMENT [None]
